FAERS Safety Report 7207080-9 (Version None)
Quarter: 2011Q1

REPORT INFORMATION
  Report Type: 
  Country: None (occurrence: None)
  Receive Date: 20110103
  Receipt Date: 20101223
  Transmission Date: 20110831
  Serious: Yes (Other)
  Sender: FDA-Public Use
  Company Number: B0691699A

PATIENT
  Age: 63 Year
  Sex: Male

DRUGS (2)
  1. KLACID [Suspect]
     Indication: CHRONIC SINUSITIS
     Route: 048
     Dates: start: 20020301, end: 20020301
  2. AUGMENTIN '125' [Suspect]
     Indication: CHRONIC SINUSITIS
     Route: 048
     Dates: start: 20020301, end: 20020301

REACTIONS (1)
  - HEPATIC ENZYME INCREASED [None]
